FAERS Safety Report 7627697-7 (Version None)
Quarter: 2011Q3

REPORT INFORMATION
  Report Type: 
  Country: None (occurrence: None)
  Receive Date: 20110721
  Receipt Date: 20110720
  Transmission Date: 20111222
  Serious: Yes (Other)
  Sender: FDA-Public Use
  Company Number: JP-B.I. PHARMACEUTICALS,INC./RIDGEFIELD-2011-BP-18108NB

PATIENT
  Age: 78 Year
  Sex: Male
  Weight: 110 kg

DRUGS (7)
  1. NIFEDIPINE [Concomitant]
     Dosage: 40 MG
     Route: 048
     Dates: start: 20110706
  2. ARICEPT [Concomitant]
     Dosage: 5 MG
     Route: 048
     Dates: start: 20110707
  3. NIFEDIPINE [Concomitant]
     Indication: HYPERTENSION
     Dosage: 20 MG
     Route: 048
     Dates: start: 20110702, end: 20110705
  4. DIOVAN [Concomitant]
     Indication: HYPERTENSION
     Dosage: 40 MG
     Route: 048
     Dates: start: 20110629
  5. LASOPRAN OD [Concomitant]
     Indication: GASTROINTESTINAL HAEMORRHAGE
     Dosage: 15 MG
     Route: 048
     Dates: start: 20110629
  6. PRADAXA [Suspect]
     Indication: ATRIAL FIBRILLATION
     Dosage: 220 MG
     Route: 048
     Dates: start: 20110629, end: 20110706
  7. ARICEPT [Concomitant]
     Indication: DEMENTIA
     Dosage: 3 MG
     Route: 048
     Dates: start: 20110629, end: 20110706

REACTIONS (1)
  - CEREBRAL INFARCTION [None]
